FAERS Safety Report 7942561-1 (Version None)
Quarter: 2011Q4

REPORT INFORMATION
  Report Type: 
  Country: None (occurrence: None)
  Receive Date: 20111122
  Receipt Date: 20110819
  Transmission Date: 20120403
  Serious: Yes (Other)
  Sender: FDA-Public Use
  Company Number: PHEH2011US02322

PATIENT
  Sex: Male

DRUGS (1)
  1. GILENYA [Suspect]
     Dosage: 0.5MG, QD, ORAL
     Route: 048

REACTIONS (3)
  - INTRASPINAL ABSCESS [None]
  - BACK PAIN [None]
  - PAIN IN EXTREMITY [None]
